FAERS Safety Report 4292497-5 (Version None)
Quarter: 2004Q1

REPORT INFORMATION
  Report Type: 
  Country: None (occurrence: None)
  Receive Date: 20040211
  Receipt Date: 20040211
  Transmission Date: 20041129
  Serious: Yes (Death)
  Sender: FDA-Public Use
  Company Number: None

PATIENT
  Age: 64 Year
  Sex: Male
  Weight: 54.6584 kg

DRUGS (2)
  1. ETOPOSIDE [Suspect]
     Dosage: 158 3 INTRAVENOUS
     Route: 042
     Dates: start: 20031124, end: 20031126
  2. CISPLATIN [Suspect]
     Dosage: 126 1 INTRAVENOUS
     Route: 042
     Dates: start: 20031124, end: 20031124

REACTIONS (2)
  - DYSPNOEA [None]
  - TACHYPNOEA [None]
